FAERS Safety Report 14936334 (Version 1)
Quarter: 2018Q2

REPORT INFORMATION
  Report Type: Spontaneous
  Country: JP (occurrence: JP)
  Receive Date: 20180524
  Receipt Date: 20180524
  Transmission Date: 20180711
  Serious: Yes (Other)
  Sender: FDA-Public Use
  Company Number: JP-ALLERGAN-1827381US

PATIENT
  Age: 82 Year
  Sex: Male

DRUGS (3)
  1. TELEMINSOFT [Concomitant]
     Active Substance: BISACODYL
     Dosage: UNK, UNKNOWN
     Route: 065
  2. LINACLOTIDE - BP [Suspect]
     Active Substance: LINACLOTIDE
     Indication: IRRITABLE BOWEL SYNDROME
     Dosage: 0.5 MG,QD
     Route: 048
  3. SENNOSIDE [Concomitant]
     Active Substance: SENNOSIDES
     Dosage: UNK UNK, UNKNOWN
     Route: 065

REACTIONS (4)
  - Blood pressure decreased [Unknown]
  - Intestinal obstruction [Unknown]
  - Incorrect dose administered [Unknown]
  - Abdominal pain [Unknown]

NARRATIVE: CASE EVENT DATE: 20180405
